FAERS Safety Report 8405197-4 (Version None)
Quarter: 2012Q2

REPORT INFORMATION
  Report Type: 
  Country: None (occurrence: None)
  Receive Date: 20120603
  Receipt Date: 20120524
  Transmission Date: 20120825
  Serious: Yes (Hospitalization, Other)
  Sender: FDA-Public Use
  Company Number: JP-VERTEX PHARMACEUTICALS INC.-AE-2012-007725

PATIENT
  Age: 66 Year
  Sex: Male

DRUGS (10)
  1. TELAVIC (TELAPREVIR) [Suspect]
     Indication: HEPATITIS C
     Route: 048
     Dates: start: 20120319, end: 20120514
  2. RIBAVIRIN [Concomitant]
     Route: 048
     Dates: start: 20120319, end: 20120429
  3. PEG-INTRON [Concomitant]
     Route: 051
     Dates: start: 20120524
  4. RIBAVIRIN [Concomitant]
     Dates: start: 20120524
  5. DIOVAN [Concomitant]
     Route: 048
  6. PEG-INTRON [Concomitant]
     Indication: HEPATITIS C
     Route: 051
     Dates: start: 20120319, end: 20120514
  7. RIBAVIRIN [Concomitant]
     Route: 048
     Dates: start: 20120430, end: 20120514
  8. URSO 250 [Concomitant]
     Route: 048
  9. NORVASC [Concomitant]
     Route: 048
  10. NIZATIDINE [Concomitant]
     Route: 048

REACTIONS (1)
  - DRUG ERUPTION [None]
